FAERS Safety Report 9961551 (Version 6)
Quarter: 2016Q3

REPORT INFORMATION
  Report Type: Spontaneous
  Country: US (occurrence: US)
  Receive Date: 20140305
  Receipt Date: 20160719
  Transmission Date: 20161109
  Serious: Yes (Hospitalization, Other)
  Sender: FDA-Public Use
  Company Number: US-ACTELION-A-US2014-95687

PATIENT
  Age: 57 Year
  Sex: Female

DRUGS (22)
  1. SINGULAIR [Concomitant]
     Active Substance: MONTELUKAST SODIUM
     Dosage: 10 MG QHS
  2. ZOLOFT [Concomitant]
     Active Substance: SERTRALINE HYDROCHLORIDE
     Dosage: 200 MG QAM
  3. OXYBUTIN [Concomitant]
     Active Substance: OXYBUTYNIN
     Dosage: 10 MG, UNK
  4. ARAVA [Concomitant]
     Active Substance: LEFLUNOMIDE
     Dosage: 20 MG QAM
  5. CALCIUM [Concomitant]
     Active Substance: CALCIUM
     Dosage: 5 MG, UNK
     Route: 048
  6. DIPHENHYDRAMINE. [Concomitant]
     Active Substance: DIPHENHYDRAMINE
     Dosage: 25 MG, UNK
     Route: 048
  7. OXYGEN. [Concomitant]
     Active Substance: OXYGEN
  8. ALBUTEROL. [Concomitant]
     Active Substance: ALBUTEROL
     Dosage: 2 PUFFS Q4H PRN
  9. ACETAMINOPHEN. [Concomitant]
     Active Substance: ACETAMINOPHEN
     Dosage: 325 MG
  10. VENTAVIS [Suspect]
     Active Substance: ILOPROST
     Dosage: 5 MCG, 6-9X/DAY
     Route: 055
  11. WARFARIN [Concomitant]
     Active Substance: WARFARIN
  12. LEFLUNOMIDE. [Concomitant]
     Active Substance: LEFLUNOMIDE
     Dosage: 20 MG, UNK
     Route: 048
  13. PRILOSEC [Concomitant]
     Active Substance: OMEPRAZOLE MAGNESIUM
     Dosage: 40 MG QHS
  14. ADVAIR HFA [Concomitant]
     Active Substance: FLUTICASONE PROPIONATE\SALMETEROL XINAFOATE
     Dosage: 500/50 1 PUFF BID
  15. LETAIRIS [Concomitant]
     Active Substance: AMBRISENTAN
     Dosage: 10 MG QD
  16. SERTRALINE [Concomitant]
     Active Substance: SERTRALINE HYDROCHLORIDE
     Dosage: 100 MG, UNK
     Route: 048
  17. OMEPRAZOLE ACID REDUCER [Concomitant]
     Active Substance: OMEPRAZOLE
     Dosage: 20 MG, BID
     Route: 048
  18. REVATIO [Concomitant]
     Active Substance: SILDENAFIL CITRATE
     Dosage: 20 MG TID
  19. DITROPAN [Concomitant]
     Active Substance: OXYBUTYNIN CHLORIDE
     Dosage: 2.5 MG TID
  20. CLOTRIMAZOLE. [Concomitant]
     Active Substance: CLOTRIMAZOLE
     Dosage: 1% TOP. CREAM PRN
  21. VENTAVIS [Suspect]
     Active Substance: ILOPROST
     Indication: PULMONARY ARTERIAL HYPERTENSION
     Dosage: 2.5 MCG, 6XDAY
     Route: 055
     Dates: start: 20131126
  22. CRESTOR [Concomitant]
     Active Substance: ROSUVASTATIN CALCIUM
     Dosage: 5 MG QHS

REACTIONS (15)
  - Chills [Recovered/Resolved]
  - Aspartate aminotransferase increased [Unknown]
  - Laboratory test abnormal [Unknown]
  - Platelet count decreased [Recovering/Resolving]
  - Arthralgia [Unknown]
  - Alanine aminotransferase increased [Unknown]
  - Blood alkaline phosphatase increased [Unknown]
  - Pyrexia [Recovered/Resolved]
  - Febrile neutropenia [Recovered/Resolved]
  - Fracture treatment [Unknown]
  - Wrist fracture [Unknown]
  - Anaemia [Recovering/Resolving]
  - Leukaemia recurrent [Unknown]
  - Hyperhidrosis [Recovered/Resolved]
  - Liver function test abnormal [Unknown]

NARRATIVE: CASE EVENT DATE: 201402
